FAERS Safety Report 5843050-0 (Version None)
Quarter: 2008Q3

REPORT INFORMATION
  Report Type: 
  Country: None (occurrence: None)
  Receive Date: 20080811
  Receipt Date: 20080730
  Transmission Date: 20090109
  Serious: Yes (Other)
  Sender: FDA-Public Use
  Company Number: 2008-02813

PATIENT
  Age: 66 Year
  Sex: Female
  Weight: 68 kg

DRUGS (5)
  1. VELCADE [Suspect]
     Indication: MULTIPLE MYELOMA
     Dates: start: 20080101, end: 20080530
  2. PLAQUENIL [Suspect]
     Indication: MULTIPLE MYELOMA
     Dates: start: 20080101, end: 20080530
  3. ACYCLOVIR [Concomitant]
  4. WELLBUTRIN [Concomitant]
  5. NORTRIPTYLINE HCL [Concomitant]

REACTIONS (2)
  - BRONCHIAL HYPERREACTIVITY [None]
  - DISEASE PROGRESSION [None]
